FAERS Safety Report 20648341 (Version 1)
Quarter: 2022Q1

REPORT INFORMATION
  Report Type: Spontaneous
  Country: US (occurrence: None)
  Receive Date: 20220328
  Receipt Date: 20220328
  Transmission Date: 20220423
  Serious: Yes (Other)
  Sender: FDA-Public Use
  Company Number: None

PATIENT
  Age: 48 Year
  Sex: Male
  Weight: 81.9 kg

DRUGS (3)
  1. JATENZO [Suspect]
     Active Substance: TESTOSTERONE UNDECANOATE
     Indication: Blood testosterone decreased
     Dosage: FREQUENCY : TWICE A DAY;?
     Route: 048
     Dates: start: 20220318, end: 20220319
  2. CIALIS [Concomitant]
     Active Substance: TADALAFIL
  3. VITAMIN D [Concomitant]
     Active Substance: VITAMIN D NOS

REACTIONS (6)
  - Agitation [None]
  - Therapy interrupted [None]
  - Aggression [None]
  - Blood testosterone increased [None]
  - Blood pressure systolic increased [None]
  - Allergic reaction to excipient [None]

NARRATIVE: CASE EVENT DATE: 20220319
